FAERS Safety Report 11096217 (Version 3)
Quarter: 2015Q3

REPORT INFORMATION
  Report Type: Spontaneous
  Country: US (occurrence: US)
  Receive Date: 20150507
  Receipt Date: 20150908
  Transmission Date: 20151125
  Serious: Yes (Hospitalization)
  Sender: FDA-Public Use
  Company Number: US-BAYER-2015-194272

PATIENT
  Age: 27 Year
  Sex: Female
  Weight: 74.2 kg

DRUGS (1)
  1. MIRENA [Suspect]
     Active Substance: LEVONORGESTREL
     Indication: CONTRACEPTION
     Dosage: 20 MCG/24HR, CONT
     Route: 015
     Dates: start: 20100312, end: 20130611

REACTIONS (2)
  - Uterine perforation [None]
  - Injury [None]

NARRATIVE: CASE EVENT DATE: 20130513
